FAERS Safety Report 7859352-2 (Version None)
Quarter: 2011Q4

REPORT INFORMATION
  Report Type: 
  Country: None (occurrence: None)
  Receive Date: 20111027
  Receipt Date: 20111003
  Transmission Date: 20120403
  Serious: No
  Sender: FDA-Public Use
  Company Number: US-BAYER-2011-094692

PATIENT
  Age: 60 Year
  Sex: Female

DRUGS (1)
  1. MENOSTAR [Suspect]
     Indication: HOT FLUSH
     Dosage: 14 ?G/D, UNK
     Route: 062

REACTIONS (2)
  - HOT FLUSH [None]
  - CRYING [None]
